FAERS Safety Report 14393762 (Version 1)
Quarter: 2018Q1

REPORT INFORMATION
  Report Type: Spontaneous
  Country: US (occurrence: US)
  Receive Date: 20180113
  Receipt Date: 20180113
  Transmission Date: 20180509
  Serious: No
  Sender: FDA-Public Use
  Company Number: None

PATIENT
  Age: 79 Year
  Sex: Male

DRUGS (1)
  1. NEXAVAR [Suspect]
     Active Substance: SORAFENIB
     Indication: HEPATIC CANCER
     Route: 048
     Dates: start: 20171215, end: 20180112

REACTIONS (4)
  - Diarrhoea [None]
  - Constipation [None]
  - Disease progression [None]
  - Arthralgia [None]

NARRATIVE: CASE EVENT DATE: 20180112
